FAERS Safety Report 8158480-4 (Version None)
Quarter: 2012Q1

REPORT INFORMATION
  Report Type: 
  Country: None (occurrence: None)
  Receive Date: 20120223
  Receipt Date: 20120221
  Transmission Date: 20120608
  Serious: No
  Sender: FDA-Public Use
  Company Number: US-PFIZER INC-2012045995

PATIENT
  Sex: Female
  Weight: 78.005 kg

DRUGS (1)
  1. IBUPROFEN (ADVIL) [Suspect]
     Dosage: 200 MG, AS NEEDED
     Route: 048
     Dates: start: 20120220, end: 20120221

REACTIONS (1)
  - NAUSEA [None]
